FAERS Safety Report 12084614 (Version 1)
Quarter: 2016Q1

REPORT INFORMATION
  Report Type: Spontaneous
  Country: US (occurrence: US)
  Receive Date: 20160217
  Receipt Date: 20160217
  Transmission Date: 20160526
  Serious: No
  Sender: FDA-Public Use
  Company Number: US-PFIZER INC-2016036378

PATIENT
  Age: 79 Year
  Sex: Female
  Weight: 52.61 kg

DRUGS (4)
  1. ADVIL [Suspect]
     Active Substance: IBUPROFEN
     Indication: PAIN
     Dosage: 200 MG (ONE 200MG TABLET)
     Dates: start: 20160120, end: 20160120
  2. ADVIL [Suspect]
     Active Substance: IBUPROFEN
     Indication: JOINT INJURY
  3. ADVIL [Suspect]
     Active Substance: IBUPROFEN
     Indication: NECK INJURY
  4. ADVIL [Suspect]
     Active Substance: IBUPROFEN
     Indication: SWELLING
     Dosage: 200MG, 2 IN THE MORNING, AND FOLLOW UP WITH ONE MORE IF NEEDED 6 HOURS LATER

REACTIONS (5)
  - Arthralgia [Not Recovered/Not Resolved]
  - Pain in extremity [Not Recovered/Not Resolved]
  - Joint swelling [Not Recovered/Not Resolved]
  - Expired product administered [Unknown]
  - Peripheral swelling [Not Recovered/Not Resolved]
